FAERS Safety Report 20297898 (Version 2)
Quarter: 2022Q1

REPORT INFORMATION
  Report Type: Spontaneous
  Country: US (occurrence: US)
  Receive Date: 20220105
  Receipt Date: 20220107
  Transmission Date: 20220424
  Serious: No
  Sender: FDA-Public Use
  Company Number: US-NOVARTISTESTPH-NVSC2022US000916

PATIENT
  Sex: Male
  Weight: 85.28 kg

DRUGS (1)
  1. COSENTYX [Suspect]
     Active Substance: SECUKINUMAB
     Indication: Psoriasis
     Dosage: 300 MG, QW (WEEK 0,1,2,3,4, AND THEN ONCE EVERY 4 WEEKS)
     Route: 058

REACTIONS (1)
  - Off label use [Unknown]
